FAERS Safety Report 21790297 (Version 1)
Quarter: 2022Q4

REPORT INFORMATION
  Report Type: Spontaneous
  Country: US (occurrence: None)
  Receive Date: 20221228
  Receipt Date: 20221228
  Transmission Date: 20230112
  Serious: Yes (Hospitalization)
  Sender: FDA-Public Use
  Company Number: 2022A413428

PATIENT
  Age: 26099 Day
  Sex: Female
  Weight: 59 kg

DRUGS (1)
  1. BUDESONIDE\FORMOTEROL\GLYCOPYRRONIUM [Suspect]
     Active Substance: BUDESONIDE\FORMOTEROL\GLYCOPYRRONIUM
     Indication: Chronic obstructive pulmonary disease
     Dosage: 160/9/4.8UG, 2 INHALATION TWICE DAILY
     Route: 055

REACTIONS (9)
  - Thrombosis [Unknown]
  - Pulmonary embolism [Unknown]
  - Lung opacity [Unknown]
  - Speech disorder [Unknown]
  - Heart rate increased [Unknown]
  - Asthenia [Unknown]
  - Wrong technique in device usage process [Unknown]
  - Product dose omission issue [Recovered/Resolved]
  - Device delivery system issue [Unknown]

NARRATIVE: CASE EVENT DATE: 20221003
